FAERS Safety Report 13074143 (Version 1)
Quarter: 2016Q4

REPORT INFORMATION
  Report Type: Spontaneous
  Country: GB (occurrence: GB)
  Receive Date: 20161229
  Receipt Date: 20161229
  Transmission Date: 20170207
  Serious: Yes (Other)
  Sender: FDA-Public Use
  Company Number: GB-MYLANLABS-2016M1057651

PATIENT

DRUGS (1)
  1. IBUPROFEN MYLAN [Suspect]
     Active Substance: IBUPROFEN
     Indication: MUSCLE SPASMS
     Dosage: 400 MG, UNK
     Route: 048
     Dates: start: 20161125, end: 20161207

REACTIONS (3)
  - Sneezing [Not Recovered/Not Resolved]
  - Lymphadenopathy [Not Recovered/Not Resolved]
  - Rhinorrhoea [Not Recovered/Not Resolved]

NARRATIVE: CASE EVENT DATE: 20161207
